FAERS Safety Report 6893490-6 (Version None)
Quarter: 2010Q3

REPORT INFORMATION
  Report Type: 
  Country: None (occurrence: None)
  Receive Date: 20100731
  Receipt Date: 20090922
  Transmission Date: 20110219
  Serious: No
  Sender: FDA-Public Use
  Company Number: US-PFIZER INC-2009272437

PATIENT
  Sex: Female

DRUGS (5)
  1. LIPITOR [Suspect]
     Indication: HYPERLIPIDAEMIA
     Dosage: UNK
     Dates: start: 20090512
  2. REVLIMID [Suspect]
     Indication: SIDEROBLASTIC ANAEMIA
     Dosage: 10 MG, UNK
     Dates: start: 20090117
  3. DEFERASIROX [Concomitant]
     Dosage: UNK
     Dates: start: 20081101
  4. ACTONEL [Concomitant]
     Dosage: UNK
     Dates: start: 20090201
  5. ACETYLSALICYLIC ACID [Concomitant]
     Dosage: 81 MG, UNK

REACTIONS (2)
  - ALANINE AMINOTRANSFERASE INCREASED [None]
  - ASPARTATE AMINOTRANSFERASE INCREASED [None]
